FAERS Safety Report 7827417-7 (Version None)
Quarter: 2011Q4

REPORT INFORMATION
  Report Type: 
  Country: None (occurrence: None)
  Receive Date: 20111020
  Receipt Date: 20111010
  Transmission Date: 20120403
  Serious: Yes (Other)
  Sender: FDA-Public Use
  Company Number: FR-JNJFOC-20111004886

PATIENT
  Age: 71 Year
  Sex: Male

DRUGS (12)
  1. METHOTREXATE [Suspect]
     Indication: PSORIASIS
     Route: 058
     Dates: end: 20100301
  2. METHOTREXATE [Suspect]
     Route: 058
     Dates: start: 20090728
  3. METHOXSALEN [Suspect]
     Indication: PSORIASIS
     Route: 048
     Dates: start: 20090301
  4. NOVORAPID [Concomitant]
     Indication: TYPE 2 DIABETES MELLITUS
     Route: 058
     Dates: start: 20090801
  5. LANTUS [Concomitant]
     Indication: TYPE 2 DIABETES MELLITUS
     Route: 058
  6. REMICADE [Suspect]
     Route: 042
     Dates: start: 20110524
  7. METFORMIN HCL [Concomitant]
     Indication: TYPE 2 DIABETES MELLITUS
     Route: 048
  8. LEVOTHYROXINE SODIUM [Concomitant]
     Indication: HYPOTHYROIDISM
  9. REMICADE [Suspect]
     Indication: PSORIASIS
     Route: 042
     Dates: start: 20110609
  10. METHOXSALEN [Suspect]
     Route: 048
     Dates: end: 20090601
  11. RAMIPRIL [Concomitant]
     Indication: HYPERTENSION
     Route: 048
  12. RIFAMPIN AND ISONIAZID [Concomitant]
     Indication: MYCOBACTERIUM TUBERCULOSIS COMPLEX TEST POSITIVE
     Route: 048
     Dates: start: 20100301

REACTIONS (1)
  - COLON CANCER [None]
